FAERS Safety Report 8519970 (Version 2)
Quarter: 2012Q4

REPORT INFORMATION
  Report Type: 
  Country: US (occurrence: US)
  Receive Date: 20120418
  Receipt Date: 20121120
  Transmission Date: 20130627
  Serious: No
  Sender: FDA-Public Use
  Company Number: US-ASTRAZENECA-2012SE08275

PATIENT
  Age: 57 Year
  Sex: Female
  Weight: 72.6 kg

DRUGS (7)
  1. NEXIUM [Suspect]
     Indication: GASTROOESOPHAGEAL REFLUX DISEASE
     Dosage: TWO TIMES A DAY
     Route: 048
  2. OMEPRAZOLE [Suspect]
     Route: 048
  3. SYMBICORT [Suspect]
     Dosage: UNKNOWN FREQUENCY
     Route: 055
  4. SYNTHROID [Concomitant]
  5. SPIRIVA [Concomitant]
  6. DOPONEX [Concomitant]
  7. DEXILANT [Concomitant]

REACTIONS (5)
  - Erosive oesophagitis [Unknown]
  - Hiatus hernia [Unknown]
  - Vomiting [Unknown]
  - Off label use [Unknown]
  - Drug ineffective [Unknown]
